FAERS Safety Report 5944106-4 (Version None)
Quarter: 2008Q4

REPORT INFORMATION
  Report Type: 
  Country: None (occurrence: None)
  Receive Date: 20081106
  Receipt Date: 20081028
  Transmission Date: 20090506
  Serious: Yes (Hospitalization, Other)
  Sender: FDA-Public Use
  Company Number: US-AMGEN-US227490

PATIENT
  Sex: Male

DRUGS (9)
  1. PANITUMUMAB [Suspect]
     Indication: COLORECTAL CANCER
     Route: 042
     Dates: start: 20070326
  2. IRINOTECAN HYDROCHLORIDE [Suspect]
     Route: 065
  3. HYDROCHLOROTHIAZIDE [Concomitant]
     Route: 048
  4. LOVENOX [Concomitant]
     Route: 058
  5. B6-VICOTRAT [Concomitant]
     Route: 065
  6. ZOFRAN [Concomitant]
     Route: 065
  7. COMPAZINE [Concomitant]
     Route: 065
  8. COMPAZINE [Concomitant]
     Route: 065
  9. HYDROCHLOROTHIAZIDE [Concomitant]
     Route: 065

REACTIONS (3)
  - DEHYDRATION [None]
  - DIARRHOEA [None]
  - NEUTROPENIA [None]
